FAERS Safety Report 6411123-X (Version None)
Quarter: 2009Q4

REPORT INFORMATION
  Report Type: 
  Country: None (occurrence: None)
  Receive Date: 20091022
  Receipt Date: 20091015
  Transmission Date: 20100525
  Serious: Yes (Other)
  Sender: FDA-Public Use
  Company Number: ES-PFIZER INC-2009283465

PATIENT
  Age: 46 Year

DRUGS (2)
  1. TOVIAZ [Suspect]
     Dosage: UNK
     Route: 048
     Dates: start: 20090726, end: 20090701
  2. IRON [Concomitant]

REACTIONS (1)
  - LARYNGEAL OEDEMA [None]
